FAERS Safety Report 10448400 (Version 2)
Quarter: 2014Q4

REPORT INFORMATION
  Report Type: Spontaneous
  Country: GB (occurrence: GB)
  Receive Date: 20140911
  Receipt Date: 20141001
  Transmission Date: 20150528
  Serious: Yes (Other)
  Sender: FDA-Public Use
  Company Number: GB-ABBVIE-14K-167-1281705-00

PATIENT
  Age: 20 Year
  Sex: Male

DRUGS (4)
  1. HUMIRA [Suspect]
     Active Substance: ADALIMUMAB
     Dosage: LOADING DOSE
     Route: 058
     Dates: start: 20140801, end: 20140801
  2. HUMIRA [Suspect]
     Active Substance: ADALIMUMAB
     Dosage: 1 WEEK AFTER 80MG DOSE
     Route: 058
     Dates: start: 201408
  3. HUMIRA [Suspect]
     Active Substance: ADALIMUMAB
     Dosage: 2 WEEKS AFTER 160MG INDUCTION DOSE
     Route: 058
     Dates: start: 201408, end: 201408
  4. HUMIRA [Suspect]
     Active Substance: ADALIMUMAB
     Indication: CROHN^S DISEASE
     Dates: end: 201308

REACTIONS (3)
  - Drug effect decreased [Not Recovered/Not Resolved]
  - Drug effect decreased [Not Recovered/Not Resolved]
  - Mental disorder [Unknown]

NARRATIVE: CASE EVENT DATE: 201408
